FAERS Safety Report 23970262 (Version 1)
Quarter: 2024Q2

REPORT INFORMATION
  Report Type: Spontaneous
  Country: JP (occurrence: JP)
  Receive Date: 20240613
  Receipt Date: 20240613
  Transmission Date: 20240716
  Serious: Yes (Hospitalization)
  Sender: FDA-Public Use
  Company Number: JP-MTPC-MTPC2024-0012050

PATIENT
  Age: 42 Year
  Sex: Female

DRUGS (4)
  1. EDARAVONE [Suspect]
     Active Substance: EDARAVONE
     Indication: Cerebral infarction
     Route: 065
  2. ASPIRIN [Concomitant]
     Active Substance: ASPIRIN
     Indication: Cerebral artery stenosis
     Dosage: 100 MILLIGRAM
     Route: 048
  3. FRUCTOSE [Concomitant]
     Active Substance: FRUCTOSE
     Indication: Cerebral infarction
     Route: 065
  4. GLYCERIN [Concomitant]
     Active Substance: GLYCERIN
     Indication: Cerebral infarction
     Route: 065

REACTIONS (3)
  - Cerebral artery stenosis [Unknown]
  - Mental impairment [Unknown]
  - Maternal exposure during pregnancy [Unknown]
